FAERS Safety Report 8215214-2 (Version None)
Quarter: 2012Q1

REPORT INFORMATION
  Report Type: 
  Country: None (occurrence: None)
  Receive Date: 20120316
  Receipt Date: 20120302
  Transmission Date: 20120608
  Serious: Yes (Other)
  Sender: FDA-Public Use
  Company Number: US-MYLANLABS-2012S1005650

PATIENT
  Sex: Male
  Weight: 100.3 kg

DRUGS (21)
  1. INDERAL [Concomitant]
  2. GLUCOSAMINE [Concomitant]
  3. ZINC SULFATE [Concomitant]
  4. PLENDIL [Concomitant]
  5. LOPRESSOR [Concomitant]
  6. VITAMIN D [Concomitant]
  7. LOVASTATIN [Concomitant]
  8. METFORMIN HYDROCHLORIDE [Concomitant]
  9. NIACIN [Concomitant]
  10. ASCORBIC ACID [Concomitant]
  11. REGLAN [Concomitant]
  12. VITAMIN A [Concomitant]
  13. DIGOXIN [Suspect]
     Route: 048
     Dates: start: 20080610, end: 20081108
  14. LOTREL [Concomitant]
  15. MAXZIDE [Concomitant]
  16. COUMADIN [Concomitant]
  17. LISINOPRIL [Concomitant]
  18. ACIPHEX [Concomitant]
  19. NITROGLYCERIN [Concomitant]
  20. LESCOL [Concomitant]
  21. CALCIUM [Concomitant]

REACTIONS (49)
  - APNOEA [None]
  - CARDIAC PACEMAKER BATTERY REPLACEMENT [None]
  - CARDIOMEGALY [None]
  - EXOSTOSIS [None]
  - HEART RATE IRREGULAR [None]
  - JUDGEMENT IMPAIRED [None]
  - LABORATORY TEST ABNORMAL [None]
  - PULSE ABNORMAL [None]
  - TRICUSPID VALVE INCOMPETENCE [None]
  - SICK SINUS SYNDROME [None]
  - SNORING [None]
  - SOMNOLENCE [None]
  - TACHYCARDIA [None]
  - ADVERSE DRUG REACTION [None]
  - TOXICITY TO VARIOUS AGENTS [None]
  - ACTINIC KERATOSIS [None]
  - HEART RATE INCREASED [None]
  - LUNG HYPERINFLATION [None]
  - OXYGEN SATURATION DECREASED [None]
  - OEDEMA [None]
  - REGURGITATION [None]
  - SLEEP APNOEA SYNDROME [None]
  - VOMITING [None]
  - ARRHYTHMIA [None]
  - CONTINUOUS POSITIVE AIRWAY PRESSURE [None]
  - GRAVITATIONAL OEDEMA [None]
  - HYPERTENSION [None]
  - KYPHOSIS [None]
  - OSTEOARTHRITIS [None]
  - VENTRICULAR EXTRASYSTOLES [None]
  - NAUSEA [None]
  - DIABETES MELLITUS [None]
  - MITRAL VALVE INCOMPETENCE [None]
  - RENAL FAILURE [None]
  - DYSPNOEA [None]
  - LEFT VENTRICULAR HYPERTROPHY [None]
  - SKIN LESION [None]
  - CHEST DISCOMFORT [None]
  - DILATATION ATRIAL [None]
  - HYPOPHAGIA [None]
  - ATRIAL FIBRILLATION [None]
  - ANTICOAGULANT THERAPY [None]
  - DIZZINESS [None]
  - SPINAL OSTEOARTHRITIS [None]
  - WEIGHT DECREASED [None]
  - ANGINA PECTORIS [None]
  - BREATH SOUNDS ABNORMAL [None]
  - FATIGUE [None]
  - IRON DEFICIENCY ANAEMIA [None]
